FAERS Safety Report 19801686 (Version 2)
Quarter: 2021Q3

REPORT INFORMATION
  Report Type: Spontaneous
  Country: US (occurrence: US)
  Receive Date: 20210908
  Receipt Date: 20210913
  Transmission Date: 20211014
  Serious: No
  Sender: FDA-Public Use
  Company Number: US-SA-2021SA292811

PATIENT
  Age: 49 Year
  Sex: Male

DRUGS (11)
  1. BACLOFEN. [Concomitant]
     Active Substance: BACLOFEN
  2. VITAMIN D3 [Concomitant]
     Active Substance: CHOLECALCIFEROL
  3. AUBAGIO [Suspect]
     Active Substance: TERIFLUNOMIDE
     Indication: MULTIPLE SCLEROSIS
     Dosage: 14 MG, QD
     Route: 065
  4. AMLODIPINE BESYLATE. [Concomitant]
     Active Substance: AMLODIPINE BESYLATE
  5. IBUPROFEN. [Concomitant]
     Active Substance: IBUPROFEN
  6. COLECALCIFEROL [Concomitant]
     Active Substance: CHOLECALCIFEROL
  7. LISINOPRIL. [Concomitant]
     Active Substance: LISINOPRIL
  8. METFORMIN HCL [Concomitant]
     Active Substance: METFORMIN HYDROCHLORIDE
  9. RIZATRIPTAN BENZOATE. [Concomitant]
     Active Substance: RIZATRIPTAN BENZOATE
  10. VALPROEX [Concomitant]
     Active Substance: VALPROATE SODIUM
  11. ATORVASTATIN CALCIUM. [Concomitant]
     Active Substance: ATORVASTATIN CALCIUM

REACTIONS (1)
  - Product dose omission issue [Unknown]

NARRATIVE: CASE EVENT DATE: 202108
